FAERS Safety Report 13699063 (Version 1)
Quarter: 2017Q2

REPORT INFORMATION
  Report Type: Other
  Country: DK (occurrence: DK)
  Receive Date: 20170628
  Receipt Date: 20170628
  Transmission Date: 20170830
  Serious: Yes (Hospitalization)
  Sender: FDA-Public Use
  Company Number: DK-CELLTRION INC.-2017DK008208

PATIENT

DRUGS (13)
  1. REMSIMA [Suspect]
     Active Substance: INFLIXIMAB
     Dosage: 700 MG, ROUGHLY ONCE MONTHLY
     Route: 042
  2. METFORMIN [Concomitant]
     Active Substance: METFORMIN HYDROCHLORIDE
     Indication: TYPE 2 DIABETES MELLITUS
     Route: 048
  3. METHYLPREDNISOLONE SUCCINATE [Concomitant]
     Indication: COLITIS ULCERATIVE
     Dosage: UNK
     Dates: start: 20170501, end: 20170501
  4. JANUVIA [Concomitant]
     Active Substance: SITAGLIPTIN PHOSPHATE
     Indication: TYPE 2 DIABETES MELLITUS
     Route: 048
  5. SOLU-MEDROL [Concomitant]
     Active Substance: METHYLPREDNISOLONE SODIUM SUCCINATE
     Indication: COLITIS ULCERATIVE
     Dosage: UNK
     Dates: start: 20170104
  6. VANCOMYCIN [Concomitant]
     Active Substance: VANCOMYCIN
     Indication: CLOSTRIDIUM DIFFICILE INFECTION
  7. REMSIMA [Suspect]
     Active Substance: INFLIXIMAB
     Dosage: 700 MG, ROUGHLY ONCE MONTHLY
     Route: 042
  8. METHYLPREDNISOLONE. [Concomitant]
     Active Substance: METHYLPREDNISOLONE
  9. REMSIMA [Suspect]
     Active Substance: INFLIXIMAB
     Dosage: 700 MG, ROUGHLY ONCE MONTHLY
     Route: 042
  10. REMSIMA [Suspect]
     Active Substance: INFLIXIMAB
     Dosage: 700 MG, ROUGHLY ONCE MONTHLY
     Route: 042
  11. SYMBICORT [Concomitant]
     Active Substance: BUDESONIDE\FORMOTEROL FUMARATE DIHYDRATE
     Indication: ASTHMA
  12. REMSIMA [Suspect]
     Active Substance: INFLIXIMAB
     Indication: COLITIS ULCERATIVE
     Dosage: 700 MG, ROUGHLY ONCE MONTHLY
     Route: 042
     Dates: start: 20170104, end: 20170104
  13. REMSIMA [Suspect]
     Active Substance: INFLIXIMAB
     Dosage: 700 MG, ROUGHLY ONCE MONTHLY
     Route: 042
     Dates: start: 20170601, end: 20170601

REACTIONS (3)
  - Pneumocystis jirovecii pneumonia [Not Recovered/Not Resolved]
  - Inappropriate schedule of drug administration [Unknown]
  - Lung infiltration [Not Recovered/Not Resolved]

NARRATIVE: CASE EVENT DATE: 20170601
